FAERS Safety Report 15085247 (Version 1)
Quarter: 2018Q2

REPORT INFORMATION
  Report Type: Report from Study
  Country: US (occurrence: US)
  Receive Date: 20180628
  Receipt Date: 20180628
  Transmission Date: 20180711
  Serious: Yes (Hospitalization)
  Sender: FDA-Public Use
  Company Number: US-ACTELION-A-US2018-174394

PATIENT
  Age: 67 Year
  Sex: Male

DRUGS (15)
  1. ATORVASTATIN [Concomitant]
     Active Substance: ATORVASTATIN
  2. FUROSEMIDE. [Concomitant]
     Active Substance: FUROSEMIDE
  3. ALLOPURINOL. [Concomitant]
     Active Substance: ALLOPURINOL
  4. LUMIGAN [Concomitant]
     Active Substance: BIMATOPROST
  5. OPSUMIT [Suspect]
     Active Substance: MACITENTAN
     Indication: PULMONARY ARTERIAL HYPERTENSION
     Dosage: 10 MG, QD
     Route: 048
     Dates: start: 20180515
  6. ALPHAGAN P [Concomitant]
     Active Substance: BRIMONIDINE TARTRATE
  7. BUMETANIDE. [Concomitant]
     Active Substance: BUMETANIDE
  8. WARFARIN [Concomitant]
     Active Substance: WARFARIN
  9. METOLAZONE. [Concomitant]
     Active Substance: METOLAZONE
  10. POTASSIUM CHLORIDE. [Concomitant]
     Active Substance: POTASSIUM CHLORIDE
  11. TAMSULOSIN [Concomitant]
     Active Substance: TAMSULOSIN
  12. GABAPENTIN. [Concomitant]
     Active Substance: GABAPENTIN
  13. OMEPRAZOLE. [Concomitant]
     Active Substance: OMEPRAZOLE
  14. CLOPIDOGREL [Concomitant]
     Active Substance: CLOPIDOGREL BISULFATE
  15. NOVOLIN [Concomitant]
     Active Substance: INSULIN HUMAN

REACTIONS (1)
  - Pneumonia [Not Recovered/Not Resolved]
